FAERS Safety Report 24139131 (Version 1)
Quarter: 2024Q3

REPORT INFORMATION
  Report Type: Spontaneous
  Country: CN (occurrence: CN)
  Receive Date: 20240726
  Receipt Date: 20240726
  Transmission Date: 20241016
  Serious: Yes (Life-Threatening, Hospitalization, Other)
  Sender: JOHNSON AND JOHNSON
  Company Number: CN-BAYER-2024A106507

PATIENT
  Age: 72 Year
  Sex: Female
  Weight: 60 kg

DRUGS (1)
  1. XARELTO [Suspect]
     Active Substance: RIVAROXABAN
     Indication: Thrombosis prophylaxis
     Dosage: 1 DF, QD
     Route: 048
     Dates: start: 20140601, end: 20240629

REACTIONS (10)
  - Cerebral haematoma [Recovering/Resolving]
  - Cerebral haemorrhage [Recovering/Resolving]
  - Altered state of consciousness [Recovering/Resolving]
  - Coma [Recovering/Resolving]
  - Hemiplegia [Recovering/Resolving]
  - Cerebral mass effect [Unknown]
  - Tachypnoea [Recovering/Resolving]
  - Brain scan abnormal [Unknown]
  - Activated partial thromboplastin time prolonged [Unknown]
  - Fibrin D dimer increased [Unknown]

NARRATIVE: CASE EVENT DATE: 20240629
